FAERS Safety Report 11077429 (Version 2)
Quarter: 2015Q2

REPORT INFORMATION
  Report Type: Spontaneous
  Country: US (occurrence: US)
  Receive Date: 20150430
  Receipt Date: 20150526
  Transmission Date: 20150821
  Serious: No
  Sender: FDA-Public Use
  Company Number: US-JNJFOC-20140102858

PATIENT

DRUGS (14)
  1. IBUPROFEN. [Suspect]
     Active Substance: IBUPROFEN
     Indication: PROCEDURAL PAIN
     Route: 065
  2. HYDROCODONE BITARTRATE AND ACETAMINOPHEN [Suspect]
     Active Substance: ACETAMINOPHEN\HYDROCODONE BITARTRATE
     Indication: PROCEDURAL PAIN
     Route: 065
  3. ACETAMINOPHEN W/CODIENE [Suspect]
     Active Substance: ACETAMINOPHEN\CODEINE PHOSPHATE
     Indication: PROCEDURAL PAIN
     Route: 065
  4. PROPOXYPHENE + ACETAMINOPHEN [Suspect]
     Active Substance: ACETAMINOPHEN\PROPOXYPHENE
     Indication: PROCEDURAL PAIN
     Route: 065
  5. MEPERIDINE [Suspect]
     Active Substance: MEPERIDINE
     Indication: PROCEDURAL PAIN
     Route: 065
  6. PROPOXYPHENE. [Suspect]
     Active Substance: PROPOXYPHENE
     Indication: PROCEDURAL PAIN
     Route: 065
  7. KETOROLAC [Suspect]
     Active Substance: KETOROLAC\KETOROLAC TROMETHAMINE
     Indication: PROCEDURAL PAIN
     Route: 065
  8. OXYCODONE [Suspect]
     Active Substance: OXYCODONE
     Indication: PROCEDURAL PAIN
     Route: 065
  9. ASPIRIN. [Suspect]
     Active Substance: ASPIRIN
     Indication: PROCEDURAL PAIN
     Route: 065
  10. OXYCODONE/ACETAMINOPHEN [Suspect]
     Active Substance: ACETAMINOPHEN\OXYCODONE HYDROCHLORIDE
     Indication: PROCEDURAL PAIN
     Route: 065
  11. MORPHINE [Suspect]
     Active Substance: MORPHINE
     Indication: PROCEDURAL PAIN
     Route: 065
  12. ACETAMINOFEN [Suspect]
     Active Substance: ACETAMINOPHEN
     Indication: PROCEDURAL PAIN
     Route: 065
  13. HYDROCODONE [Suspect]
     Active Substance: HYDROCODONE
     Indication: PROCEDURAL PAIN
     Route: 065
  14. HYDROMORPHONE [Suspect]
     Active Substance: HYDROMORPHONE
     Indication: PROCEDURAL PAIN
     Route: 065

REACTIONS (11)
  - Somnolence [Unknown]
  - Dysuria [Unknown]
  - Dizziness [Unknown]
  - Insomnia [Unknown]
  - Pruritus [Unknown]
  - Dyspnoea [Unknown]
  - Constipation [Unknown]
  - Nausea [Unknown]
  - Vomiting [Unknown]
  - Mood altered [Unknown]
  - Confusional state [Unknown]
